FAERS Safety Report 20869985 (Version 1)
Quarter: 2022Q2

REPORT INFORMATION
  Report Type: Spontaneous
  Country: US (occurrence: US)
  Receive Date: 20220525
  Receipt Date: 20220525
  Transmission Date: 20220720
  Serious: Yes (Hospitalization, Other)
  Sender: FDA-Public Use
  Company Number: US-AMGEN-USASP2022087386

PATIENT
  Age: 81 Year
  Sex: Female

DRUGS (6)
  1. EVENITY [Suspect]
     Active Substance: ROMOSOZUMAB-AQQG
     Indication: Osteoporosis postmenopausal
     Dosage: 210 MILLIGRAM, QMO
     Route: 065
     Dates: start: 2021
  2. EVENITY [Suspect]
     Active Substance: ROMOSOZUMAB-AQQG
  3. PROLIA [Suspect]
     Active Substance: DENOSUMAB
     Indication: Osteoporosis postmenopausal
     Dosage: UNK
     Route: 065
     Dates: end: 202004
  4. VITAMIN D NOS [Concomitant]
     Active Substance: VITAMIN D NOS
     Dosage: UNK
  5. CORTISONE ACETATE [Concomitant]
     Active Substance: CORTISONE ACETATE
     Dosage: UNK
  6. CORTISOL [Concomitant]
     Active Substance: HYDROCORTISONE
     Dosage: UNK

REACTIONS (9)
  - Hypothyroidism [Unknown]
  - Oxygen saturation decreased [Recovered/Resolved]
  - Incontinence [Unknown]
  - Dehydration [Unknown]
  - Hyponatraemia [Unknown]
  - Spinal fracture [Unknown]
  - Blood potassium decreased [Unknown]
  - Blood creatinine decreased [Unknown]
  - Fall [Unknown]

NARRATIVE: CASE EVENT DATE: 20201001
